FAERS Safety Report 19845058 (Version 1)
Quarter: 2021Q3

REPORT INFORMATION
  Report Type: Spontaneous
  Country: US (occurrence: US)
  Receive Date: 20210916
  Receipt Date: 20210916
  Transmission Date: 20211014
  Serious: Yes (Hospitalization, Other)
  Sender: FDA-Public Use
  Company Number: US-BAYER-2021-209681

PATIENT
  Age: 65 Year
  Sex: Female

DRUGS (3)
  1. ALEVE [Suspect]
     Active Substance: NAPROXEN SODIUM
  2. PREDNISONE. [Concomitant]
     Active Substance: PREDNISONE
     Indication: PRODUCT USED FOR UNKNOWN INDICATION
     Route: 065
  3. RINVOQ [Concomitant]
     Active Substance: UPADACITINIB
     Indication: RHEUMATOID ARTHRITIS

REACTIONS (7)
  - Arthropathy [Unknown]
  - Ulcer haemorrhage [Recovering/Resolving]
  - Peripheral swelling [Recovering/Resolving]
  - Musculoskeletal disorder [Not Recovered/Not Resolved]
  - Rotator cuff syndrome [Unknown]
  - Pain in extremity [Unknown]
  - Arthropod bite [Recovering/Resolving]

NARRATIVE: CASE EVENT DATE: 202107
